FAERS Safety Report 5316450-5 (Version None)
Quarter: 2007Q2

REPORT INFORMATION
  Report Type: 
  Country: None (occurrence: None)
  Receive Date: 20070504
  Receipt Date: 20070423
  Transmission Date: 20071010
  Serious: Yes (Other)
  Sender: FDA-Public Use
  Company Number: PHFR2005GB01252

PATIENT
  Sex: Female

DRUGS (1)
  1. TEGRETOL [Suspect]

REACTIONS (12)
  - ANAPHYLACTIC SHOCK [None]
  - ARTHRALGIA [None]
  - DIPLOPIA [None]
  - EYE OEDEMA [None]
  - HYPOTRICHOSIS [None]
  - MUSCLE SPASMS [None]
  - MYALGIA [None]
  - NASOPHARYNGEAL DISORDER [None]
  - RASH GENERALISED [None]
  - SINUS DISORDER [None]
  - STOMATITIS [None]
  - VISION BLURRED [None]
